FAERS Safety Report 26069440 (Version 3)
Quarter: 2025Q4

REPORT INFORMATION
  Report Type: Spontaneous
  Country: EU (occurrence: EU)
  Receive Date: 20251120
  Receipt Date: 20251223
  Transmission Date: 20260118
  Serious: Yes (Life-Threatening, Hospitalization)
  Sender: ROCHE
  Company Number: EU-ROCHE-10000430789

PATIENT
  Age: 64 Year
  Sex: Female

DRUGS (12)
  1. OSELTAMIVIR [Interacting]
     Active Substance: OSELTAMIVIR
     Indication: Influenza
     Dates: start: 202412
  2. WARFARIN [Interacting]
     Active Substance: WARFARIN
     Indication: Atrial fibrillation
     Dates: end: 202412
  3. WARFARIN [Interacting]
     Active Substance: WARFARIN
     Dates: start: 202412, end: 202412
  4. WARFARIN [Interacting]
     Active Substance: WARFARIN
     Dates: start: 202412, end: 202412
  5. FUROSEMIDE [Concomitant]
     Active Substance: FUROSEMIDE
  6. BISOPROLOL [Concomitant]
     Active Substance: BISOPROLOL
  7. SPIRONOLACTONE [Concomitant]
     Active Substance: SPIRONOLACTONE
  8. DAPAGLIFLOZIN [Concomitant]
     Active Substance: DAPAGLIFLOZIN
  9. LEVOTHYROXINE [Concomitant]
     Active Substance: LEVOTHYROXINE
  10. TERBUTALINE [Concomitant]
     Active Substance: TERBUTALINE
  11. FLUTICASONE [Concomitant]
     Active Substance: FLUTICASONE
  12. SALMETEROL [Concomitant]
     Active Substance: SALMETEROL

REACTIONS (4)
  - Drug interaction [Unknown]
  - Gastrointestinal haemorrhage [Recovering/Resolving]
  - Anaemia [Recovering/Resolving]
  - International normalised ratio increased [Recovered/Resolved]
